FAERS Safety Report 6554465-X (Version None)
Quarter: 2010Q1

REPORT INFORMATION
  Report Type: 
  Country: None (occurrence: None)
  Receive Date: 20100127
  Receipt Date: 20100117
  Transmission Date: 20100710
  Serious: Yes (Other)
  Sender: FDA-Public Use
  Company Number: US-JNJCH-2010002045

PATIENT
  Sex: Female

DRUGS (1)
  1. ROLAIDS EXTRA STRENGTH FRESHMINT [Suspect]
     Indication: GASTROOESOPHAGEAL REFLUX DISEASE
     Dosage: TEXT:^AT LEAST^ 1-2 TABLETS EVERY NIGHT
     Route: 048

REACTIONS (2)
  - CONDITION AGGRAVATED [None]
  - OESOPHAGEAL DISORDER [None]
